FAERS Safety Report 10343584 (Version 1)
Quarter: 2014Q3

REPORT INFORMATION
  Report Type: Spontaneous
  Country: US (occurrence: US)
  Receive Date: 20140725
  Receipt Date: 20140725
  Transmission Date: 20150326
  Serious: Yes (Hospitalization)
  Sender: FDA-Public Use
  Company Number: US-GLAXOSMITHKLINE-A1082142A

PATIENT
  Age: 72 Year
  Sex: Female

DRUGS (10)
  1. VIIBRYD [Concomitant]
     Active Substance: VILAZODONE HYDROCHLORIDE
  2. LISINOPRIL. [Concomitant]
     Active Substance: LISINOPRIL
  3. ALBUTEROL NEBULIZER [Concomitant]
     Active Substance: ALBUTEROL
  4. ADVAIR HFA [Suspect]
     Active Substance: FLUTICASONE PROPIONATE\SALMETEROL XINAFOATE
     Indication: CHRONIC OBSTRUCTIVE PULMONARY DISEASE
     Dosage: 1PUFF TWICE PER DAY
     Route: 055
     Dates: start: 2009
  5. PRAVASTATIN [Concomitant]
     Active Substance: PRAVASTATIN\PRAVASTATIN SODIUM
  6. METOPROLOL [Concomitant]
     Active Substance: METOPROLOL
  7. UNSPECIFIED MEDICATION [Suspect]
     Active Substance: UNSPECIFIED INGREDIENT
     Indication: PRODUCT USED FOR UNKNOWN INDICATION
     Route: 065
  8. ASPIRIN. [Concomitant]
     Active Substance: ASPIRIN
  9. MULTIVITAMIN [Concomitant]
     Active Substance: VITAMINS
  10. CLOPIDOGREL BISULFATE. [Concomitant]
     Active Substance: CLOPIDOGREL BISULFATE

REACTIONS (15)
  - Retching [Unknown]
  - Asthenia [Unknown]
  - Muscular weakness [Unknown]
  - Feeling abnormal [Unknown]
  - Dry mouth [Not Recovered/Not Resolved]
  - Nervousness [Unknown]
  - Anxiety [Not Recovered/Not Resolved]
  - Coronary artery occlusion [Unknown]
  - Dizziness [Unknown]
  - Chest pain [Unknown]
  - Nausea [Unknown]
  - Cold sweat [Unknown]
  - Constipation [Not Recovered/Not Resolved]
  - Myocardial infarction [Unknown]
  - Balance disorder [Unknown]
